FAERS Safety Report 8337194-1 (Version None)
Quarter: 2012Q2

REPORT INFORMATION
  Report Type: 
  Country: None (occurrence: None)
  Receive Date: 20120504
  Receipt Date: 20120426
  Transmission Date: 20120825
  Serious: Yes (Hospitalization, Other)
  Sender: FDA-Public Use
  Company Number: PHHY2012CH035758

PATIENT
  Age: 47 Year
  Sex: Male

DRUGS (5)
  1. LOSARTAN POTASSIUM [Concomitant]
     Indication: HYPERTENSION
     Dosage: UNK UKN, UNK
  2. CELECOXIB [Concomitant]
     Indication: PSORIASIS
     Dosage: UNK UKN, UNK
  3. AMLODIPINE [Concomitant]
     Indication: HYPERTENSION
     Dosage: UNK UKN, UNK
  4. GILENYA [Suspect]
     Indication: MULTIPLE SCLEROSIS
     Dosage: UNK UKN, UNK
     Route: 048
  5. HYDROCHLOROTHIAZIDE ^LECIVA^ [Concomitant]
     Indication: HYPERTENSION
     Dosage: UNK UKN, UNK

REACTIONS (51)
  - SYSTOLIC DYSFUNCTION [None]
  - DYSPNOEA PAROXYSMAL NOCTURNAL [None]
  - FATIGUE [None]
  - NOCTURIA [None]
  - AREFLEXIA [None]
  - DYSPNOEA EXERTIONAL [None]
  - POLYARTHRITIS [None]
  - SCIATICA [None]
  - DIZZINESS [None]
  - CARDIAC FAILURE CONGESTIVE [None]
  - LEFT VENTRICULAR DYSFUNCTION [None]
  - ARRHYTHMIA [None]
  - HEART RATE IRREGULAR [None]
  - JOINT RANGE OF MOTION DECREASED [None]
  - RETCHING [None]
  - HYPOAESTHESIA [None]
  - EXTENSOR PLANTAR RESPONSE [None]
  - PARAESTHESIA [None]
  - OEDEMA [None]
  - ATRIAL FIBRILLATION [None]
  - PALPITATIONS [None]
  - HYPERHIDROSIS [None]
  - POLYURIA [None]
  - MUSCLE SPASTICITY [None]
  - AORTIC DISORDER [None]
  - DILATATION VENTRICULAR [None]
  - ATRIOVENTRICULAR BLOCK FIRST DEGREE [None]
  - ONYCHOLYSIS [None]
  - HYPOTONIA [None]
  - ANORECTAL DISORDER [None]
  - MITRAL VALVE INCOMPETENCE [None]
  - TRICUSPID VALVE INCOMPETENCE [None]
  - RALES [None]
  - OEDEMA PERIPHERAL [None]
  - ORTHOPNOEA [None]
  - ENDOCARDITIS [None]
  - ANGINA PECTORIS [None]
  - PERONEAL NERVE PALSY [None]
  - VOMITING [None]
  - ABDOMINAL PAIN [None]
  - PALLOR [None]
  - MUCOSAL DRYNESS [None]
  - MITRAL VALVE CALCIFICATION [None]
  - N-TERMINAL PROHORMONE BRAIN NATRIURETIC PEPTIDE INCREASED [None]
  - PYREXIA [None]
  - DYSPNOEA [None]
  - PULMONARY HYPERTENSION [None]
  - DIARRHOEA [None]
  - BREATH SOUNDS ABNORMAL [None]
  - DACTYLITIS [None]
  - MYALGIA [None]
